FAERS Safety Report 5051522-4 (Version None)
Quarter: 2006Q3

REPORT INFORMATION
  Report Type: 
  Country: None (occurrence: None)
  Receive Date: 20060710
  Receipt Date: 20060629
  Transmission Date: 20061208
  Serious: Yes (Other)
  Sender: FDA-Public Use
  Company Number: 2006BI006379

PATIENT
  Age: 51 Year
  Sex: Female
  Weight: 72.5755 kg

DRUGS (7)
  1. AVONEX [Suspect]
     Indication: MULTIPLE SCLEROSIS
     Dosage: 30 UG;QW;IM
     Route: 030
     Dates: start: 19980901
  2. AVONEX [Suspect]
     Indication: MULTIPLE SCLEROSIS
     Dosage: 30 UG;QW;IM
     Route: 030
     Dates: end: 20060201
  3. CRESTOR [Concomitant]
  4. TRICOR [Concomitant]
  5. ALTACE [Concomitant]
  6. PRILOSEC [Concomitant]
  7. NO6 [NITRATE] [Concomitant]

REACTIONS (1)
  - MYOCARDIAL INFARCTION [None]
